FAERS Safety Report 16142880 (Version 2)
Quarter: 2019Q2

REPORT INFORMATION
  Report Type: Report from Study
  Country: US (occurrence: US)
  Receive Date: 20190401
  Receipt Date: 20190403
  Transmission Date: 20190711
  Serious: Yes (Hospitalization, Other)
  Sender: FDA-Public Use
  Company Number: US-GILEAD-2019-0398428

PATIENT
  Age: 61 Year
  Sex: Female
  Weight: 54.9 kg

DRUGS (19)
  1. AMBRISENTAN [Suspect]
     Active Substance: AMBRISENTAN
     Indication: PULMONARY ARTERIAL HYPERTENSION
     Dosage: 10 MG, QD
     Route: 065
     Dates: start: 20091001
  2. ADCIRCA [Concomitant]
     Active Substance: TADALAFIL
  3. LASIX [Concomitant]
     Active Substance: FUROSEMIDE
  4. FERROUS SULFATE. [Concomitant]
     Active Substance: FERROUS SULFATE
  5. PERCOCET [Concomitant]
     Active Substance: ACETAMINOPHEN\OXYCODONE HYDROCHLORIDE
  6. BACTRIM DS [Concomitant]
     Active Substance: SULFAMETHOXAZOLE\TRIMETHOPRIM
  7. COUMADIN [Concomitant]
     Active Substance: WARFARIN SODIUM
  8. ULTRAM [Concomitant]
     Active Substance: TRAMADOL HYDROCHLORIDE
  9. FLEXERIL [Concomitant]
     Active Substance: CYCLOBENZAPRINE HYDROCHLORIDE
  10. MULTIVITAMINS [VITAMINS NOS] [Concomitant]
     Active Substance: VITAMINS
  11. TADALAFIL. [Suspect]
     Active Substance: TADALAFIL
     Indication: PULMONARY HYPERTENSION
     Route: 065
     Dates: start: 20180509
  12. VALIUM [Concomitant]
     Active Substance: DIAZEPAM
  13. CATAFLAM [Concomitant]
     Active Substance: DICLOFENAC POTASSIUM
  14. FOLVITE [FOLIC ACID] [Concomitant]
  15. CELEXA [Concomitant]
     Active Substance: CITALOPRAM HYDROBROMIDE
  16. UPTRAVI [Concomitant]
     Active Substance: SELEXIPAG
     Dosage: 1600 UG
     Route: 065
  17. VITAMIN B12 [Concomitant]
     Active Substance: CYANOCOBALAMIN
  18. BIAXIN [Concomitant]
     Active Substance: CLARITHROMYCIN
  19. VIBRAMYCIN [DOXYCYCLINE] [Concomitant]

REACTIONS (2)
  - Brain neoplasm [Unknown]
  - Migraine [Unknown]
